FAERS Safety Report 6108614-8 (Version None)
Quarter: 2009Q1

REPORT INFORMATION
  Report Type: 
  Country: None (occurrence: None)
  Receive Date: 20090305
  Receipt Date: 20090224
  Transmission Date: 20090719
  Serious: Yes (Hospitalization, Disabling)
  Sender: FDA-Public Use
  Company Number: OSCN-NO-0902S-0123

PATIENT
  Age: 66 Year
  Sex: Male
  Weight: 51.4 kg

DRUGS (4)
  1. OMNISCAN [Suspect]
     Indication: DRUG USE FOR UNKNOWN INDICATION
     Dosage: 10.3 ML, SINGLE DOSE, I.V.
     Route: 042
     Dates: start: 20000605, end: 20000605
  2. ERYTHROPOIETIN (EPOIETIN BETA) [Concomitant]
  3. METOPROLOL TARTRATE [Concomitant]
  4. FUROSEMIDE [Concomitant]

REACTIONS (1)
  - NEPHROGENIC SYSTEMIC FIBROSIS [None]
